FAERS Safety Report 6356937-X (Version None)
Quarter: 2009Q3

REPORT INFORMATION
  Report Type: 
  Country: None (occurrence: None)
  Receive Date: 20090915
  Receipt Date: 20090909
  Transmission Date: 20100115
  Serious: Yes (Hospitalization, Other)
  Sender: FDA-Public Use
  Company Number: US-ROXANE LABORATORIES, INC.-2009-RO-00920RO

PATIENT
  Age: 16 Year
  Sex: Female

DRUGS (27)
  1. AZATHIOPRINE [Suspect]
     Indication: DERMATOMYOSITIS
     Dosage: 100 MG
  2. METHOTREXATE [Suspect]
     Indication: DERMATOMYOSITIS
     Route: 058
  3. METHYLPREDNISOLONE [Suspect]
     Indication: DERMATOMYOSITIS
     Dosage: 4 MG
  4. METHYLPREDNISOLONE [Suspect]
     Dosage: 1 G
  5. IMMUNE GLOBULIN INTRAVENOUS (HUMAN) [Suspect]
     Indication: DERMATOMYOSITIS
     Route: 042
  6. IMMUNE GLOBULIN INTRAVENOUS (HUMAN) [Suspect]
     Route: 042
  7. HYDROXYCHLOROQUINE [Suspect]
     Indication: DERMATOMYOSITIS
     Dosage: 400 MG
  8. CEFEPIME [Concomitant]
     Indication: INFECTION
  9. CEFEPIME [Concomitant]
     Indication: ACINETOBACTER INFECTION
  10. CEFEPIME [Concomitant]
     Indication: STAPHYLOCOCCAL INFECTION
  11. CEFEPIME [Concomitant]
     Indication: PANNICULITIS
  12. VANCOMYCIN [Concomitant]
     Indication: INFECTION
  13. VANCOMYCIN [Concomitant]
     Indication: ACINETOBACTER INFECTION
  14. VANCOMYCIN [Concomitant]
     Indication: STAPHYLOCOCCAL INFECTION
  15. VANCOMYCIN [Concomitant]
     Indication: PANNICULITIS
  16. METRONIDAZOLE [Concomitant]
     Indication: INFECTION
  17. METRONIDAZOLE [Concomitant]
     Indication: ACINETOBACTER INFECTION
  18. METRONIDAZOLE [Concomitant]
     Indication: STAPHYLOCOCCAL INFECTION
  19. METRONIDAZOLE [Concomitant]
     Indication: PANNICULITIS
  20. AMPICILLIN AND SULBACTAM [Concomitant]
     Indication: ACINETOBACTER INFECTION
  21. AMPICILLIN AND SULBACTAM [Concomitant]
     Indication: STAPHYLOCOCCAL INFECTION
  22. TRIMETHOPRIM + SULFAMETHOXAZOLE [Concomitant]
     Indication: ACINETOBACTER INFECTION
  23. TRIMETHOPRIM + SULFAMETHOXAZOLE [Concomitant]
     Indication: STAPHYLOCOCCAL INFECTION
  24. COLCHICINE [Concomitant]
  25. COLCHICINE [Concomitant]
     Dosage: 1.2 MG
  26. PREDNISONE TAB [Concomitant]
     Dosage: 30 MG
  27. AMPICILLIN [Concomitant]
     Indication: PANNICULITIS

REACTIONS (12)
  - ACINETOBACTER INFECTION [None]
  - ASPARTATE AMINOTRANSFERASE INCREASED [None]
  - BLOOD CREATINE PHOSPHOKINASE INCREASED [None]
  - BLOOD LACTATE DEHYDROGENASE INCREASED [None]
  - C-REACTIVE PROTEIN INCREASED [None]
  - CALCINOSIS [None]
  - DERMATOMYOSITIS [None]
  - PANNICULITIS [None]
  - RED BLOOD CELL SEDIMENTATION RATE INCREASED [None]
  - STAPHYLOCOCCAL INFECTION [None]
  - VASCULITIS [None]
  - WHITE BLOOD CELL COUNT INCREASED [None]
